FAERS Safety Report 9881513 (Version 1)
Quarter: 2014Q1

REPORT INFORMATION
  Report Type: Spontaneous
  Country: US (occurrence: US)
  Receive Date: 20140207
  Receipt Date: 20140207
  Transmission Date: 20141002
  Serious: No
  Sender: FDA-Public Use
  Company Number: US-BAYER-2014-019805

PATIENT
  Age: 83 Year
  Sex: Female
  Weight: 65.76 kg

DRUGS (5)
  1. ALEVE TABLET [Suspect]
     Indication: ARTHRITIS
     Dosage: 2-3 DF,EVERYDAY
     Route: 048
     Dates: start: 2012
  2. EVISTA [RALOXIFENE HYDROCHLORIDE] [Concomitant]
  3. ZOCOR [Concomitant]
  4. CENTRUM SILVER [Concomitant]
  5. CALCIUM [Concomitant]

REACTIONS (1)
  - Incorrect drug administration duration [None]
